FAERS Safety Report 7206716-6 (Version None)
Quarter: 2011Q1

REPORT INFORMATION
  Report Type: 
  Country: None (occurrence: None)
  Receive Date: 20110103
  Receipt Date: 20101223
  Transmission Date: 20110831
  Serious: Yes (Hospitalization, Other)
  Sender: FDA-Public Use
  Company Number: US-JNJFOC-20100804155

PATIENT
  Sex: Female

DRUGS (3)
  1. LEVAQUIN [Suspect]
     Indication: URINARY TRACT INFECTION
     Route: 048
  2. LEVAQUIN [Suspect]
     Indication: CYSTITIS
     Route: 048
  3. LEVAQUIN [Suspect]
     Indication: ILL-DEFINED DISORDER

REACTIONS (7)
  - TENDON INJURY [None]
  - TENDON RUPTURE [None]
  - GAIT DISTURBANCE [None]
  - MUSCULOSKELETAL PAIN [None]
  - DEPRESSION [None]
  - THROMBOSIS [None]
  - TENDON PAIN [None]
